FAERS Safety Report 14354976 (Version 1)
Quarter: 2018Q1

REPORT INFORMATION
  Report Type: Spontaneous
  Country: US (occurrence: US)
  Receive Date: 20180105
  Receipt Date: 20180105
  Transmission Date: 20180509
  Serious: Yes (Disabling, Other)
  Sender: FDA-Public Use
  Company Number: US-009507513-1204USA02950

PATIENT
  Sex: Female

DRUGS (5)
  1. FOSAMAX [Suspect]
     Active Substance: ALENDRONATE SODIUM
     Route: 048
     Dates: start: 1999, end: 2009
  2. PREDNISONE. [Concomitant]
     Active Substance: PREDNISONE
     Indication: SYSTEMIC LUPUS ERYTHEMATOSUS
     Dosage: 5 MG, QD
     Route: 048
     Dates: start: 1994
  3. FOSAMAX [Suspect]
     Active Substance: ALENDRONATE SODIUM
     Dosage: UNK
     Route: 048
     Dates: start: 1997, end: 200703
  4. PREDNISONE. [Concomitant]
     Active Substance: PREDNISONE
     Dosage: 40-60 MG, QD PRN
     Route: 048
     Dates: start: 1994
  5. ALENDRONATE SODIUM. [Suspect]
     Active Substance: ALENDRONATE SODIUM
     Dosage: UNK
     Route: 048
     Dates: start: 1999, end: 2009

REACTIONS (22)
  - Sciatica [Unknown]
  - Fracture nonunion [Not Recovered/Not Resolved]
  - Spinal fracture [Recovered/Resolved]
  - Palpitations [Unknown]
  - Bone disorder [Not Recovered/Not Resolved]
  - Fall [Recovered/Resolved]
  - Femur fracture [Not Recovered/Not Resolved]
  - Femur fracture [Unknown]
  - Pathological fracture [Unknown]
  - Back pain [Unknown]
  - Bone metabolism disorder [Unknown]
  - Hip fracture [Recovered/Resolved]
  - Foot fracture [Unknown]
  - Upper limb fracture [Unknown]
  - Fall [Unknown]
  - Weight decreased [Unknown]
  - Encephalitis [Unknown]
  - Hyperhidrosis [Unknown]
  - Pelvic fracture [Recovered/Resolved]
  - Rib fracture [Unknown]
  - Femur fracture [Unknown]
  - Anxiety [Unknown]

NARRATIVE: CASE EVENT DATE: 1997
